FAERS Safety Report 4558560-6 (Version None)
Quarter: 2005Q1

REPORT INFORMATION
  Report Type: 
  Country: None (occurrence: None)
  Receive Date: 20050121
  Receipt Date: 20040504
  Transmission Date: 20050727
  Serious: Yes (Disabling)
  Sender: FDA-Public Use
  Company Number: FR-BRISTOL-MYERS SQUIBB COMPANY-12580114

PATIENT
  Age: 54 Year
  Sex: Female
  Weight: 56 kg

DRUGS (2)
  1. TAXOL [Suspect]
     Indication: OVARIAN CANCER
     Dosage: 1ST CYCLE-01 AUG 2003 6TH CYCLE 15 NOV 2003
     Route: 042
     Dates: start: 20031115, end: 20031115
  2. CARBOPLATIN [Suspect]
     Indication: OVARIAN CANCER
     Dosage: 1ST CYCLE-01 AUG 2003 6TH CYCLE 15 NOV 2003
     Route: 042
     Dates: start: 20031115, end: 20031115

REACTIONS (3)
  - ARTHRALGIA [None]
  - MYALGIA [None]
  - URETHRAL ADENOMA [None]
